FAERS Safety Report 19233465 (Version 1)
Quarter: 2021Q2

REPORT INFORMATION
  Report Type: Report from Study
  Country: US (occurrence: US)
  Receive Date: 20210507
  Receipt Date: 20210507
  Transmission Date: 20210717
  Serious: Yes (Hospitalization)
  Sender: FDA-Public Use
  Company Number: US-GLAXOSMITHKLINE-US2019TSO167827

PATIENT
  Age: 55 Year
  Sex: Female
  Weight: 71.9 kg

DRUGS (13)
  1. NIRAPARIB [Suspect]
     Active Substance: NIRAPARIB
     Dosage: 100 MG, QD
     Route: 048
     Dates: start: 20190910, end: 20190910
  2. BEVACIZUMAB. [Suspect]
     Active Substance: BEVACIZUMAB
     Indication: OVARIAN CANCER
     Dosage: 1089 MG, SINGLE
     Route: 042
     Dates: start: 20190718, end: 20190718
  3. ZOFRAN [Concomitant]
     Active Substance: ONDANSETRON HYDROCHLORIDE
     Indication: NAUSEA
     Dosage: 10 MG, SINGLE
     Route: 042
     Dates: start: 20190830, end: 20190830
  4. SODIUM CHLORIDE. [Concomitant]
     Active Substance: SODIUM CHLORIDE
     Indication: PROPHYLAXIS AGAINST DEHYDRATION
     Dosage: 1000 ML, QD
     Route: 042
     Dates: start: 20190822, end: 20190822
  5. DOSTARLIMAB [Suspect]
     Active Substance: DOSTARLIMAB
     Dosage: 500 MG
     Route: 042
     Dates: start: 20190906, end: 20190906
  6. SODIUM CHLORIDE. [Concomitant]
     Active Substance: SODIUM CHLORIDE
     Indication: FATIGUE
     Dosage: 1000 ML, SINGLE
     Route: 042
     Dates: start: 20190830, end: 20190830
  7. NIRAPARIB [Suspect]
     Active Substance: NIRAPARIB
     Indication: OVARIAN CANCER
     Dosage: 200 MG, UNK
     Route: 048
     Dates: start: 20190718
  8. DOSTARLIMAB [Suspect]
     Active Substance: DOSTARLIMAB
     Indication: OVARIAN CANCER
     Dosage: 500 MG
     Route: 042
     Dates: start: 20190718, end: 20190718
  9. ONDANSETRON [Concomitant]
     Active Substance: ONDANSETRON
     Indication: NAUSEA
     Dosage: 10 MG, QD
     Route: 042
     Dates: start: 20190830, end: 20190830
  10. MIDAZOLAM. [Concomitant]
     Active Substance: MIDAZOLAM
     Indication: SEDATION
     Dosage: 1 MG, SINGLE
     Route: 042
     Dates: start: 20190829, end: 20190829
  11. FENTANYL. [Concomitant]
     Active Substance: FENTANYL
     Indication: PAIN PROPHYLAXIS
     Dosage: 100 UNK, SINGLE
     Route: 042
     Dates: start: 20190829, end: 20190829
  12. BEVACIZUMAB. [Suspect]
     Active Substance: BEVACIZUMAB
     Dosage: 15 MG
     Route: 042
     Dates: start: 20190906, end: 20190906
  13. COLACE [Concomitant]
     Active Substance: DOCUSATE SODIUM
     Indication: CONSTIPATION
     Dosage: 100 MG, QD
     Route: 048
     Dates: start: 20190816

REACTIONS (1)
  - Pneumonitis [Recovered/Resolved]

NARRATIVE: CASE EVENT DATE: 20190912
